FAERS Safety Report 7206255-2 (Version None)
Quarter: 2011Q1

REPORT INFORMATION
  Report Type: 
  Country: None (occurrence: None)
  Receive Date: 20110103
  Receipt Date: 20101221
  Transmission Date: 20110831
  Serious: No
  Sender: FDA-Public Use
  Company Number: PHHY2010US14616

PATIENT
  Sex: Female
  Weight: 112.29 kg

DRUGS (5)
  1. CARDIZEM CD [Concomitant]
  2. LASIX [Concomitant]
  3. ORUVAIL [Concomitant]
  4. TASIGNA [Suspect]
     Indication: CHRONIC MYELOID LEUKAEMIA
     Dosage: 200 MG, 2 TAB Q12H
     Route: 048
     Dates: start: 20091204
  5. K-DUR [Concomitant]

REACTIONS (2)
  - DRUG ADMINISTRATION ERROR [None]
  - TREATMENT NONCOMPLIANCE [None]
